FAERS Safety Report 9562909 (Version 6)
Quarter: 2014Q1

REPORT INFORMATION
  Report Type: Spontaneous
  Country: US (occurrence: US)
  Receive Date: 20130927
  Receipt Date: 20140313
  Transmission Date: 20141002
  Serious: Yes (Hospitalization, Other)
  Sender: FDA-Public Use
  Company Number: US-009507513-1206USA04380

PATIENT
  Sex: Female

DRUGS (3)
  1. FOSAMAX [Suspect]
     Indication: OSTEOPOROSIS
     Dosage: 10 MG, UNK
     Route: 048
     Dates: start: 200205
  2. FOSAMAX [Suspect]
     Indication: OSTEOPENIA
     Dosage: 70 MG, QW
     Dates: end: 200711
  3. ALENDRONATE SODIUM [Suspect]
     Indication: OSTEOPOROSIS
     Dosage: 70 MG, QW
     Route: 048
     Dates: start: 200803, end: 201011

REACTIONS (31)
  - Intramedullary rod insertion [Unknown]
  - Surgery [Unknown]
  - Neurogenic bladder [Unknown]
  - Femur fracture [Unknown]
  - Hypersensitivity [Unknown]
  - Foot operation [Unknown]
  - Knee operation [Unknown]
  - Foot fracture [Unknown]
  - Depression [Unknown]
  - Anxiety [Unknown]
  - Barrett^s oesophagus [Unknown]
  - Hypothyroidism [Unknown]
  - Arthritis [Unknown]
  - Fall [Unknown]
  - Cystitis noninfective [Unknown]
  - Essential hypertension [Unknown]
  - Tendonitis [Unknown]
  - Haemangioma of liver [Unknown]
  - Fracture nonunion [Unknown]
  - Osteitis [Unknown]
  - Hyperlipidaemia [Unknown]
  - Insomnia [Unknown]
  - Anaemia [Unknown]
  - Muscular weakness [Unknown]
  - Gastrointestinal inflammation [Unknown]
  - Constipation [Unknown]
  - Arthralgia [Not Recovered/Not Resolved]
  - Muscle spasms [Unknown]
  - Oedema peripheral [Unknown]
  - Back pain [Not Recovered/Not Resolved]
  - Gastrooesophageal reflux disease [Unknown]
